FAERS Safety Report 12185142 (Version 2)
Quarter: 2016Q1

REPORT INFORMATION
  Report Type: Report from Study
  Country: GR (occurrence: GR)
  Receive Date: 20160316
  Receipt Date: 20160323
  Transmission Date: 20160526
  Serious: Yes (Other)
  Sender: FDA-Public Use
  Company Number: PHHY2016GR033876

PATIENT
  Age: 43 Year
  Sex: Female

DRUGS (3)
  1. STELARA [Suspect]
     Active Substance: USTEKINUMAB
     Indication: PRODUCT USED FOR UNKNOWN INDICATION
     Dosage: UNK
     Route: 065
     Dates: end: 201506
  2. NEORAL [Suspect]
     Active Substance: CYCLOSPORINE
     Indication: PSORIATIC ARTHROPATHY
     Dosage: 200 MG, QD
     Route: 065
  3. PREZOLON [Suspect]
     Active Substance: PREDNISOLONE
     Indication: PRODUCT USED FOR UNKNOWN INDICATION
     Dosage: 10 MG, UNK
     Route: 065

REACTIONS (9)
  - Synovitis [Unknown]
  - Rash [Recovered/Resolved]
  - Rheumatoid arthritis [Unknown]
  - Pain [Recovered/Resolved]
  - Rash [Unknown]
  - Oedema [Not Recovered/Not Resolved]
  - Drug ineffective for unapproved indication [Unknown]
  - Arthritis [Not Recovered/Not Resolved]
  - Product use issue [Unknown]
